FAERS Safety Report 9487741 (Version 2)
Quarter: 2013Q3

REPORT INFORMATION
  Report Type: Spontaneous
  Country: US (occurrence: US)
  Receive Date: 20130725
  Receipt Date: 20130725
  Transmission Date: 20140515
  Serious: No
  Sender: FDA-Public Use
  Company Number: US-GLAXOSMITHKLINE-A0897000A

PATIENT
  Age: 63 Year
  Sex: Female
  Weight: 88.2 kg

DRUGS (8)
  1. AVANDIA [Suspect]
     Indication: TYPE 2 DIABETES MELLITUS
     Dosage: 8MG PER DAY
     Route: 048
     Dates: start: 200612, end: 20070817
  2. NORVASC [Concomitant]
  3. GLUCOPHAGE [Concomitant]
  4. ALLEGRA [Concomitant]
  5. DIOVAN [Concomitant]
  6. ZEBETA [Concomitant]
  7. CLIMARA [Concomitant]
  8. METFORMIN [Concomitant]

REACTIONS (2)
  - Arteriosclerosis [Not Recovered/Not Resolved]
  - Coronary artery disease [Unknown]
